FAERS Safety Report 12195307 (Version 1)
Quarter: 2016Q1

REPORT INFORMATION
  Report Type: Report from Study
  Country: CA (occurrence: CA)
  Receive Date: 20160321
  Receipt Date: 20160321
  Transmission Date: 20160526
  Serious: Yes (Hospitalization)
  Sender: FDA-Public Use
  Company Number: CA-JNJFOC-20160313240

PATIENT
  Age: 49 Year
  Sex: Female
  Weight: 59.1 kg

DRUGS (5)
  1. REMICADE [Suspect]
     Active Substance: INFLIXIMAB
     Indication: COLITIS ULCERATIVE
     Route: 042
     Dates: start: 20101007
  2. REMICADE [Suspect]
     Active Substance: INFLIXIMAB
     Indication: COLITIS ULCERATIVE
     Dosage: INFUSION DURATION: NO LESS THAN 1 HOUR.
     Route: 042
     Dates: start: 20160311
  3. TYLENOL [Concomitant]
     Active Substance: ACETAMINOPHEN
     Indication: PREMEDICATION
     Route: 048
  4. AERIUS [Concomitant]
     Active Substance: DESLORATADINE
     Indication: PREMEDICATION
     Route: 048
  5. HYDROCORTISONE. [Concomitant]
     Active Substance: HYDROCORTISONE
     Indication: PREMEDICATION
     Route: 042

REACTIONS (5)
  - Diverticulitis [Recovering/Resolving]
  - Product use issue [Unknown]
  - Haematochezia [Recovering/Resolving]
  - Off label use [Unknown]
  - Frequent bowel movements [Unknown]

NARRATIVE: CASE EVENT DATE: 20101007
